FAERS Safety Report 6611739-1 (Version None)
Quarter: 2010Q1

REPORT INFORMATION
  Report Type: 
  Country: None (occurrence: None)
  Receive Date: 20100218
  Receipt Date: 20091027
  Transmission Date: 20100710
  Serious: Yes (Hospitalization, Other)
  Sender: FDA-Public Use
  Company Number: WAES 0910USA00012

PATIENT
  Age: 58 Year
  Sex: Male
  Weight: 76.2043 kg

DRUGS (6)
  1. ISENTRESS [Suspect]
     Indication: HIV INFECTION
     Dosage: PO
     Route: 048
     Dates: start: 20081202, end: 20090209
  2. TRUVADA [Concomitant]
  3. DARUNAVIR [Concomitant]
  4. EMTRICITABINE [Concomitant]
  5. ETRAVIRINE [Concomitant]
  6. RITONAVIR [Concomitant]

REACTIONS (3)
  - HEPATIC ENZYME INCREASED [None]
  - HEPATITIS ACUTE [None]
  - IMMUNE RECONSTITUTION SYNDROME [None]
